FAERS Safety Report 15622770 (Version 6)
Quarter: 2019Q1

REPORT INFORMATION
  Report Type: Report from Study
  Country: IT (occurrence: IT)
  Receive Date: 20181115
  Receipt Date: 20190118
  Transmission Date: 20190417
  Serious: Yes (Other)
  Sender: FDA-Public Use
  Company Number: IT-VERTEX PHARMACEUTICALS-2018-008192

PATIENT
  Age: 30 Year
  Sex: Female
  Weight: 64 kg

DRUGS (2)
  1. VX-445 [Suspect]
     Active Substance: INVESTIGATIONAL PRODUCT
     Indication: CYSTIC FIBROSIS
     Dosage: UNK
     Route: 048
     Dates: start: 20181016
  2. VX-661/VX-770 [Suspect]
     Active Substance: IVACAFTOR\TEZACAFTOR
     Indication: CYSTIC FIBROSIS
     Dosage: UNK
     Route: 048
     Dates: start: 20181016

REACTIONS (1)
  - Rash pruritic [Recovered/Resolved]

NARRATIVE: CASE EVENT DATE: 20181105
